FAERS Safety Report 25279097 (Version 1)
Quarter: 2025Q2

REPORT INFORMATION
  Report Type: Spontaneous
  Country: GB (occurrence: GB)
  Receive Date: 20250507
  Receipt Date: 20250507
  Transmission Date: 20250716
  Serious: Yes (Other)
  Sender: PURDUE
  Company Number: GB-PURDUE-USA-2025-0317262

PATIENT
  Age: 65 Year
  Sex: Male
  Weight: 89 kg

DRUGS (2)
  1. OXYCODONE HYDROCHLORIDE [Suspect]
     Active Substance: OXYCODONE HYDROCHLORIDE
     Indication: Postoperative analgesia
     Route: 065
     Dates: start: 20250410, end: 20250413
  2. TRAMADOL [Concomitant]
     Active Substance: TRAMADOL
     Indication: Postoperative analgesia
     Route: 065
     Dates: start: 20250410, end: 20250416

REACTIONS (1)
  - Hallucination, visual [Recovered/Resolved]

NARRATIVE: CASE EVENT DATE: 20250411
